FAERS Safety Report 5655246-1 (Version None)
Quarter: 2008Q1

REPORT INFORMATION
  Report Type: 
  Country: None (occurrence: None)
  Receive Date: 20080307
  Receipt Date: 20080227
  Transmission Date: 20080703
  Serious: Yes (Hospitalization)
  Sender: FDA-Public Use
  Company Number: A0713903A

PATIENT
  Age: 27 Year
  Sex: Female

DRUGS (2)
  1. MALARONE [Suspect]
     Indication: MALARIA PROPHYLAXIS
     Route: 048
     Dates: start: 20080108, end: 20080123
  2. BIRTH CONTROL [Concomitant]

REACTIONS (7)
  - ADVERSE EVENT [None]
  - DELUSION [None]
  - FEAR [None]
  - HALLUCINATION [None]
  - HYPERTENSION [None]
  - INSOMNIA [None]
  - PALPITATIONS [None]
